FAERS Safety Report 10031729 (Version 2)
Quarter: 2014Q2

REPORT INFORMATION
  Report Type: Spontaneous
  Country: US (occurrence: US)
  Receive Date: 20140324
  Receipt Date: 20140428
  Transmission Date: 20141212
  Serious: No
  Sender: FDA-Public Use
  Company Number: US-PFIZER INC-2014082269

PATIENT
  Age: 42 Year
  Sex: Female
  Weight: 87.98 kg

DRUGS (2)
  1. LYRICA [Suspect]
     Indication: NEURALGIA
     Dosage: 75 MG, 2X/DAY
     Dates: start: 2013, end: 201308
  2. LYRICA [Suspect]
     Indication: FIBROMYALGIA
     Dosage: 75 MG, 2X/DAY
     Dates: start: 20140307

REACTIONS (1)
  - Fibromyalgia [Unknown]
